FAERS Safety Report 5704548-9 (Version None)
Quarter: 2008Q2

REPORT INFORMATION
  Report Type: 
  Country: None (occurrence: None)
  Receive Date: 20080411
  Receipt Date: 20080411
  Transmission Date: 20081010
  Serious: Yes (Hospitalization, Other)
  Sender: FDA-Public Use
  Company Number: None

PATIENT
  Age: 56 Year
  Sex: Female
  Weight: 124.7392 kg

DRUGS (4)
  1. SINGULAIR [Suspect]
     Indication: ASTHMA
  2. SINGULAIR [Suspect]
     Indication: MULTIPLE ALLERGIES
  3. EFFEXOR [Suspect]
     Indication: BIPOLAR DISORDER
  4. EFFEXOR [Suspect]
     Indication: DEPRESSION

REACTIONS (2)
  - AMNESIA [None]
  - SUICIDAL IDEATION [None]
